FAERS Safety Report 4705268-X (Version None)
Quarter: 2005Q2

REPORT INFORMATION
  Report Type: 
  Country: None (occurrence: None)
  Receive Date: 20050629
  Receipt Date: 20050621
  Transmission Date: 20051028
  Serious: Yes (Death, Other)
  Sender: FDA-Public Use
  Company Number: 05-06-1080

PATIENT
  Age: 80 Year
  Sex: Male

DRUGS (1)
  1. CLOZAPINE [Suspect]
     Indication: SCHIZOPHRENIA
     Dosage: 200-350NG QD ORAL
     Route: 048
     Dates: start: 20000501, end: 20050601

REACTIONS (2)
  - METASTASES TO BONE [None]
  - PROSTATE CANCER METASTATIC [None]
